FAERS Safety Report 9186643 (Version 1)
Quarter: 2012Q4

REPORT INFORMATION
  Report Type: 
  Country: US (occurrence: US)
  Receive Date: 20121102
  Receipt Date: 20121102
  Transmission Date: 20130627
  Serious: No
  Sender: FDA-Public Use
  Company Number: US-ASTELLAS-2012US006922

PATIENT
  Sex: Male

DRUGS (3)
  1. MYCAMINE [Suspect]
     Indication: GASTROINTESTINAL INFLAMMATION
     Dosage: 900 mg, UID/QD
     Route: 041
     Dates: start: 20120801, end: 20120801
  2. MYCAMINE [Suspect]
     Indication: COLITIS
  3. MYCAMINE [Suspect]
     Indication: COLITIS ULCERATIVE

REACTIONS (1)
  - Off label use [Unknown]
